FAERS Safety Report 8955025 (Version 3)
Quarter: 2014Q3

REPORT INFORMATION
  Report Type: Spontaneous
  Country: IE (occurrence: IE)
  Receive Date: 20121207
  Receipt Date: 20140924
  Transmission Date: 20150326
  Serious: Yes (Hospitalization, Other)
  Sender: FDA-Public Use
  Company Number: IE-ASTRAZENECA-2012SE91173

PATIENT
  Age: 1 Year
  Sex: Male
  Weight: 10.7 kg

DRUGS (1)
  1. SYNAGIS [Suspect]
     Active Substance: PALIVIZUMAB
     Indication: PREMATURE BABY
     Route: 030
     Dates: start: 20121031

REACTIONS (4)
  - Lower respiratory tract infection [Recovering/Resolving]
  - Respiratory tract infection [Recovered/Resolved]
  - Asthma [Unknown]
  - Developmental delay [Unknown]

NARRATIVE: CASE EVENT DATE: 201211
